FAERS Safety Report 14777741 (Version 3)
Quarter: 2019Q4

REPORT INFORMATION
  Report Type: Spontaneous
  Country: US (occurrence: US)
  Receive Date: 20180419
  Receipt Date: 20191029
  Transmission Date: 20200122
  Serious: No
  Sender: FDA-Public Use
  Company Number: US-PFIZER INC-2018159504

PATIENT
  Age: 32 Year
  Sex: Female

DRUGS (4)
  1. NEOSPORIN WOUND CLEANSER [Suspect]
     Active Substance: BENZALKONIUM CHLORIDE
     Dosage: UNK
  2. NICKEL [Suspect]
     Active Substance: NICKEL
     Dosage: UNK
  3. PHENERGAN VC [Suspect]
     Active Substance: PHENYLEPHRINE HYDROCHLORIDE\PROMETHAZINE HYDROCHLORIDE
     Dosage: UNK
  4. MORPHINE SULFATE. [Suspect]
     Active Substance: MORPHINE SULFATE
     Dosage: UNK

REACTIONS (1)
  - Drug hypersensitivity [Unknown]
